FAERS Safety Report 15391945 (Version 3)
Quarter: 2019Q3

REPORT INFORMATION
  Report Type: Spontaneous
  Country: US (occurrence: US)
  Receive Date: 20180917
  Receipt Date: 20190701
  Transmission Date: 20191004
  Serious: No
  Sender: FDA-Public Use
  Company Number: US-PFIZER INC-2018370758

PATIENT
  Age: 62 Year
  Sex: Female
  Weight: 99.77 kg

DRUGS (2)
  1. XELJANZ XR [Suspect]
     Active Substance: TOFACITINIB CITRATE
     Dosage: 0.5 DF, 2X/DAY (1/2 TABLET IN THE MORNING AND 1/2 IN THE EVENING BY MOUTH)
     Route: 048
     Dates: start: 201811
  2. XELJANZ XR [Suspect]
     Active Substance: TOFACITINIB CITRATE
     Indication: RHEUMATOID ARTHRITIS
     Dosage: 11 MG, UNK
     Dates: start: 201809

REACTIONS (4)
  - Gastrointestinal disorder [Unknown]
  - Anxiety [Unknown]
  - Pain [Unknown]
  - Wrong technique in product usage process [Unknown]

NARRATIVE: CASE EVENT DATE: 201809
